FAERS Safety Report 10582404 (Version 2)
Quarter: 2014Q4

REPORT INFORMATION
  Report Type: Report from Study
  Country: AU (occurrence: AU)
  Receive Date: 20141113
  Receipt Date: 20141201
  Transmission Date: 20150529
  Serious: Yes (Hospitalization, Other)
  Sender: FDA-Public Use
  Company Number: PHHY2014AU144053

PATIENT
  Age: 23 Year
  Sex: Male
  Weight: 131 kg

DRUGS (2)
  1. CLOZARIL [Suspect]
     Active Substance: CLOZAPINE
     Indication: PRODUCT USED FOR UNKNOWN INDICATION
     Dosage: UNK
     Route: 065
     Dates: start: 20141013
  2. CLOZARIL [Suspect]
     Active Substance: CLOZAPINE
     Dosage: 275 MG
     Route: 065
     Dates: end: 20141030

REACTIONS (7)
  - Blood pressure increased [Unknown]
  - Atrial pressure increased [Unknown]
  - Sinus tachycardia [Unknown]
  - Ejection fraction decreased [Unknown]
  - Myocarditis [Unknown]
  - Blood creatinine decreased [Unknown]
  - Ventricular hypokinesia [Unknown]

NARRATIVE: CASE EVENT DATE: 20141030
